FAERS Safety Report 20461492 (Version 1)
Quarter: 2022Q1

REPORT INFORMATION
  Report Type: Spontaneous
  Country: US (occurrence: US)
  Receive Date: 20220211
  Receipt Date: 20220211
  Transmission Date: 20220423
  Serious: No
  Sender: FDA-Public Use
  Company Number: US-PFIZER INC-202200229426

PATIENT
  Age: 57 Year
  Sex: Male
  Weight: 77.11 kg

DRUGS (3)
  1. PAXLOVID [Suspect]
     Active Substance: NIRMATRELVIR\RITONAVIR
     Indication: COVID-19
     Dosage: UNK
     Dates: start: 20220204
  2. ACETAMINOPHEN [Concomitant]
     Active Substance: ACETAMINOPHEN
     Indication: Pain
     Dosage: 500 MG
  3. ASPIRIN\CHLORPHENIRAMINE MALEATE\PHENYLPROPANOLAMINE BITARTRATE [Concomitant]
     Active Substance: ASPIRIN\CHLORPHENIRAMINE MALEATE\PHENYLPROPANOLAMINE BITARTRATE
     Dosage: UNK

REACTIONS (1)
  - Headache [Not Recovered/Not Resolved]

NARRATIVE: CASE EVENT DATE: 20220201
